FAERS Safety Report 11716490 (Version 1)
Quarter: 2015Q4

REPORT INFORMATION
  Report Type: Spontaneous
  Country: IL (occurrence: IL)
  Receive Date: 20151109
  Receipt Date: 20151109
  Transmission Date: 20160304
  Serious: Yes (Hospitalization, Other)
  Sender: FDA-Public Use
  Company Number: IL-TAKEDA-2015TUS015481

PATIENT
  Age: 73 Year
  Sex: Male

DRUGS (3)
  1. PURINETHOL [Concomitant]
     Active Substance: MERCAPTOPURINE
  2. ENTYVIO [Suspect]
     Active Substance: VEDOLIZUMAB
     Indication: COLITIS ULCERATIVE
     Dosage: 300 MG, UNK
     Route: 042
  3. RAFASSAL                           /00000301/ [Concomitant]

REACTIONS (4)
  - Anaemia [Unknown]
  - Acute kidney injury [Not Recovered/Not Resolved]
  - Thrombocytopenia [Unknown]
  - Dehydration [Unknown]
